FAERS Safety Report 4274631-6 (Version None)
Quarter: 2004Q1

REPORT INFORMATION
  Report Type: 
  Country: None (occurrence: None)
  Receive Date: 20040115
  Receipt Date: 20040106
  Transmission Date: 20041129
  Serious: Yes (Hospitalization)
  Sender: FDA-Public Use
  Company Number: 2004AP00077

PATIENT
  Sex: Female

DRUGS (9)
  1. PULMICORT [Suspect]
     Indication: ASTHMA
     Dosage: 400 UG DAILY IH
     Route: 055
     Dates: start: 20020701, end: 20030102
  2. PULMICORT [Suspect]
     Indication: ASTHMA
     Dosage: 800 UG DAILY IH
     Route: 055
     Dates: start: 20030112, end: 20030120
  3. PULMICORT [Suspect]
     Indication: ASTHMA
     Dosage: 1600 UG DAILY IH
     Route: 055
     Dates: start: 20030121, end: 20030217
  4. PULMICORT [Suspect]
     Indication: ASTHMA
     Dosage: 800 UG DAILY IH
     Route: 055
     Dates: start: 20030218, end: 20031006
  5. THEO-DUR [Concomitant]
  6. THEOLONG [Concomitant]
  7. ONON [Concomitant]
  8. BRONCHOLIN [Concomitant]
  9. MEDROL [Concomitant]

REACTIONS (1)
  - ASTHMA [None]
